FAERS Safety Report 21838585 (Version 1)
Quarter: 2023Q1

REPORT INFORMATION
  Report Type: Spontaneous
  Country: US (occurrence: None)
  Receive Date: 20230108
  Receipt Date: 20230108
  Transmission Date: 20230417
  Serious: Yes (Other)
  Sender: FDA-Public Use
  Company Number: None

PATIENT
  Age: 35 Year
  Sex: Female
  Weight: 60 kg

DRUGS (1)
  1. IRON SUCROSE [Suspect]
     Active Substance: IRON SUCROSE
     Dosage: FREQUENCY : DAILY;?
     Dates: start: 20230107, end: 20230107

REACTIONS (1)
  - Chest pain [None]

NARRATIVE: CASE EVENT DATE: 20230107
